FAERS Safety Report 7981153-5 (Version None)
Quarter: 2011Q4

REPORT INFORMATION
  Report Type: 
  Country: None (occurrence: None)
  Receive Date: 20111212
  Receipt Date: 20111130
  Transmission Date: 20120403
  Serious: Yes (Hospitalization)
  Sender: FDA-Public Use
  Company Number: 2011SP056386

PATIENT
  Age: 55 Year
  Sex: Male

DRUGS (1)
  1. BETAMETHASONE SODIUM PHOSPHATE [Suspect]
     Indication: TENDONITIS
     Dosage: 1 DF;ONCE
     Dates: start: 20111125, end: 20111125

REACTIONS (5)
  - DYSPEPSIA [None]
  - PARAESTHESIA [None]
  - HYPERTENSION [None]
  - PRURITUS [None]
  - MYOCARDIAL INFARCTION [None]
